FAERS Safety Report 4887363-8 (Version None)
Quarter: 2006Q1

REPORT INFORMATION
  Report Type: 
  Country: None (occurrence: None)
  Receive Date: 20060123
  Receipt Date: 20060113
  Transmission Date: 20060701
  Serious: Yes (Hospitalization)
  Sender: FDA-Public Use
  Company Number: JP-JNJFOC-20060102962

PATIENT
  Sex: Female
  Weight: 48 kg

DRUGS (20)
  1. REMICADE [Suspect]
     Route: 042
  2. REMICADE [Suspect]
     Dosage: 6 INFUSIONS ON UNSPECIFIED DATES
     Route: 042
  3. REMICADE [Suspect]
     Route: 042
  4. REMICADE [Suspect]
     Route: 042
  5. REMICADE [Suspect]
     Route: 042
  6. REMICADE [Suspect]
     Route: 042
  7. REMICADE [Suspect]
     Route: 042
  8. REMICADE [Suspect]
     Indication: RHEUMATOID ARTHRITIS
     Route: 042
  9. RHEUMATREX [Suspect]
     Route: 048
  10. RHEUMATREX [Suspect]
     Route: 048
  11. RHEUMATREX [Suspect]
     Indication: RHEUMATOID ARTHRITIS
     Route: 048
  12. PREDONINE [Suspect]
     Indication: RHEUMATOID ARTHRITIS
     Route: 048
  13. AZULFIDINE EN-TABS [Concomitant]
     Indication: RHEUMATOID ARTHRITIS
     Route: 048
  14. INFREE S [Concomitant]
     Indication: RHEUMATOID ARTHRITIS
     Route: 048
  15. FOLIAMIN [Concomitant]
     Route: 048
  16. LENDORMIN [Concomitant]
     Route: 048
  17. MUCOSTA [Concomitant]
     Route: 048
  18. ASPARA-CA [Concomitant]
     Route: 048
  19. ACTONEL [Concomitant]
     Route: 048
  20. ADRENAL HORMONE PREPARATIONS [Concomitant]
     Indication: RHEUMATOID ARTHRITIS

REACTIONS (2)
  - DRUG INTERACTION [None]
  - TUBERCULOSIS [None]
